FAERS Safety Report 13322496 (Version 4)
Quarter: 2018Q4

REPORT INFORMATION
  Report Type: Spontaneous
  Country: US (occurrence: US)
  Receive Date: 20170309
  Receipt Date: 20181119
  Transmission Date: 20190204
  Serious: Yes (Other)
  Sender: FDA-Public Use
  Company Number: US-PFIZER INC-2017102069

PATIENT
  Age: 51 Year
  Sex: Female

DRUGS (72)
  1. EFFEXOR XR [Suspect]
     Active Substance: VENLAFAXINE HYDROCHLORIDE
     Dosage: 75 MG, ALTERNATE DAY (ON THE OTHER DAYS FOR 3 WEEKS)
  2. EFFEXOR XR [Suspect]
     Active Substance: VENLAFAXINE HYDROCHLORIDE
     Dosage: 1 DF, DAILY (AS DIRECTED)
     Dates: start: 20170316, end: 20170505
  3. ADVIL [Concomitant]
     Active Substance: IBUPROFEN
     Indication: PAIN
     Dosage: 200 MG, AS NEEDED
     Dates: start: 20140214
  4. CYCLOBENZAPRINE HCL [Concomitant]
     Active Substance: CYCLOBENZAPRINE HYDROCHLORIDE
     Indication: MYALGIA
     Dosage: 1-2 EVERY NIGHT AT BEDTIME
     Route: 048
     Dates: start: 20170706, end: 20180111
  5. BUPROPION HCL ER [Concomitant]
     Active Substance: BUPROPION HYDROCHLORIDE
     Dosage: 1 DF, DAILY (IN THE MORNING)
     Route: 048
     Dates: start: 20170627, end: 20170705
  6. TRINTELLIX [Concomitant]
     Active Substance: VORTIOXETINE HYDROBROMIDE
     Dosage: 5 MG, UNK
     Dates: start: 20170419
  7. AZITHROMYCIN ANHYDROUS. [Concomitant]
     Active Substance: AZITHROMYCIN ANHYDROUS
     Dosage: 2 BY MOUTH, DAY 1 EVERY DAY 2-5
     Route: 048
     Dates: start: 20161005, end: 20170419
  8. EFFEXOR XR [Suspect]
     Active Substance: VENLAFAXINE HYDROCHLORIDE
     Dosage: 300 MG, UNK
  9. EFFEXOR XR [Suspect]
     Active Substance: VENLAFAXINE HYDROCHLORIDE
     Dosage: 2 DF, DAILY
     Route: 048
     Dates: start: 20130531
  10. EFFEXOR XR [Suspect]
     Active Substance: VENLAFAXINE HYDROCHLORIDE
     Dosage: 150 MG, 2X/DAY
     Route: 048
     Dates: start: 20130829
  11. EFFEXOR XR [Suspect]
     Active Substance: VENLAFAXINE HYDROCHLORIDE
     Dosage: 2 DF, DAILY
     Route: 048
     Dates: start: 20170526, end: 20170706
  12. EFFEXOR XR [Suspect]
     Active Substance: VENLAFAXINE HYDROCHLORIDE
     Dosage: 75 MG, 37.5 MG
     Dates: start: 20170419
  13. VENLAFAXINE HCL [Concomitant]
     Active Substance: VENLAFAXINE HYDROCHLORIDE
     Dosage: UNK, DAILY EVERY DAY FOR 2 WEEKS AND THEN EVERY OTHER DAY FOR 2 WEEKS
     Route: 048
     Dates: start: 20180607, end: 20180922
  14. PREDNISONE. [Concomitant]
     Active Substance: PREDNISONE
     Indication: DERMATITIS CONTACT
     Dosage: 2 DF, DAILY
     Route: 048
     Dates: start: 20130829, end: 20131015
  15. DOXYCYCLINE HYCLATE. [Concomitant]
     Active Substance: DOXYCYCLINE HYCLATE
     Dosage: 2 ON DAY 1, 1 ON DAYS 2-5
     Route: 048
     Dates: start: 20180607, end: 20180614
  16. EFFEXOR XR [Suspect]
     Active Substance: VENLAFAXINE HYDROCHLORIDE
     Dosage: 75 MG, FOR 3 WEEKS
  17. EFFEXOR XR [Suspect]
     Active Substance: VENLAFAXINE HYDROCHLORIDE
     Dosage: 150 MG, DAILY (EVERY DAY)
     Route: 048
     Dates: start: 20150610
  18. VENLAFAXINE HCL [Concomitant]
     Active Substance: VENLAFAXINE HYDROCHLORIDE
     Indication: DEPRESSION
     Dosage: UNK, 1X/DAY 2 WEEKS
     Route: 048
     Dates: start: 20111128, end: 20111216
  19. VENLAFAXINE HCL [Concomitant]
     Active Substance: VENLAFAXINE HYDROCHLORIDE
     Dosage: 1 DF, 1X/DAY
     Route: 048
     Dates: start: 20120810
  20. BUPROPION HCL ER [Concomitant]
     Active Substance: BUPROPION HYDROCHLORIDE
     Dosage: 300 MG, DAILY 1/2 TABLET BY MOUTH DAILY IN THE MORNING
     Dates: start: 20180607
  21. TAMIFLU [Concomitant]
     Active Substance: OSELTAMIVIR PHOSPHATE
     Dosage: 1 DF, 2X/DAY FOR 5 DAYS
     Route: 048
     Dates: start: 20140214, end: 20140301
  22. DIPROLENE [Concomitant]
     Active Substance: BETAMETHASONE DIPROPIONATE
     Indication: DERMATITIS ATOPIC
     Dosage: 2X/DAY
     Dates: start: 20130821, end: 20131015
  23. EFFEXOR XR [Suspect]
     Active Substance: VENLAFAXINE HYDROCHLORIDE
     Indication: DEPRESSION
     Dosage: UNK
     Dates: start: 2013
  24. EFFEXOR XR [Suspect]
     Active Substance: VENLAFAXINE HYDROCHLORIDE
     Dosage: UNK, DAILY
     Dates: start: 20130531, end: 20170412
  25. EFFEXOR XR [Suspect]
     Active Substance: VENLAFAXINE HYDROCHLORIDE
     Dosage: 1 DF, DAILY (AS DIRECTED)
     Dates: end: 20170526
  26. ADVIL [Concomitant]
     Active Substance: IBUPROFEN
     Dosage: 200 MG, AS NEEDED
     Dates: start: 20150610
  27. VENLAFAXINE HCL [Concomitant]
     Active Substance: VENLAFAXINE HYDROCHLORIDE
     Indication: ANXIETY
     Dosage: UNK, 1X/DAY
     Route: 048
     Dates: start: 20111128, end: 20120120
  28. AZITHROMYCIN ANHYDROUS. [Concomitant]
     Active Substance: AZITHROMYCIN ANHYDROUS
     Dosage: 2 DAY 1 THEN 1 DAILY, 2-5 DAYS
     Route: 048
     Dates: start: 20120810, end: 20120815
  29. PREDNISONE. [Concomitant]
     Active Substance: PREDNISONE
     Dosage: 5 QDX2 DAYS, 4 QDX2 DAYS; 3 QDX2 DAYS; 2 QDX2 DAYS; 1QDX2 DAYS
     Route: 048
     Dates: start: 20180607, end: 20180617
  30. TRAMADOL HCL [Concomitant]
     Active Substance: TRAMADOL HYDROCHLORIDE
     Indication: PAIN
     Dosage: 1 DF, 4X/DAY
     Dates: start: 20151026, end: 20160216
  31. TRAMADOL HCL [Concomitant]
     Active Substance: TRAMADOL HYDROCHLORIDE
     Indication: MUSCLE STRAIN
  32. TRAMADOL HCL [Concomitant]
     Active Substance: TRAMADOL HYDROCHLORIDE
     Indication: BONE DISORDER
  33. TAMIFLU [Concomitant]
     Active Substance: OSELTAMIVIR PHOSPHATE
     Indication: UPPER RESPIRATORY TRACT INFECTION
     Dosage: 1 DF, 2X/DAY FOR 5 DAYS
     Route: 048
     Dates: start: 20121214, end: 20121224
  34. EFFEXOR XR [Suspect]
     Active Substance: VENLAFAXINE HYDROCHLORIDE
     Dosage: 1 DF, DAILY (AS DIRECTED)
     Route: 048
     Dates: start: 20170316, end: 20170503
  35. ADVIL [Concomitant]
     Active Substance: IBUPROFEN
     Dosage: 200 MG, UNK
     Dates: start: 20170419
  36. ADVIL [Concomitant]
     Active Substance: IBUPROFEN
     Dosage: 200 MG, AS NEEDED
     Dates: start: 20180607
  37. VENLAFAXINE HCL [Concomitant]
     Active Substance: VENLAFAXINE HYDROCHLORIDE
     Dosage: UNK UNK, 1X/DAY
     Route: 048
     Dates: start: 20120120, end: 20130531
  38. BUPROPION HCL ER [Concomitant]
     Active Substance: BUPROPION HYDROCHLORIDE
     Indication: DEPRESSION
     Dosage: 1 DF, DAILY (IN THE MORNING)
     Route: 048
     Dates: start: 20170613, end: 20170627
  39. PREDNISONE. [Concomitant]
     Active Substance: PREDNISONE
     Dosage: 4X3D, 3X3D, 2X3D,1X3D
     Route: 048
     Dates: start: 20131015, end: 20131015
  40. PREDNISONE. [Concomitant]
     Active Substance: PREDNISONE
     Dosage: 5X2D, 4X2D, 3X2D, 2X2D, 1X2D
     Route: 048
     Dates: start: 20180607
  41. DOXYCYCLINE HYCLATE. [Concomitant]
     Active Substance: DOXYCYCLINE HYCLATE
     Dosage: 1 DF, 2X/DAY (10 DAYS)
     Route: 048
     Dates: start: 20120815, end: 20121214
  42. PAXIL [Concomitant]
     Active Substance: PAROXETINE HYDROCHLORIDE
     Dosage: 1/4 DAILY
     Route: 048
     Dates: start: 20180822, end: 20181023
  43. EFFEXOR XR [Suspect]
     Active Substance: VENLAFAXINE HYDROCHLORIDE
     Dosage: 150 MG, UNK
  44. EFFEXOR XR [Suspect]
     Active Substance: VENLAFAXINE HYDROCHLORIDE
     Dosage: 150 MG, ALTERNATE DAY (ON EVEN DAYS FOR 3 WEEKS)
  45. BUPROPION HCL ER [Concomitant]
     Active Substance: BUPROPION HYDROCHLORIDE
     Dosage: 0.5 DF, DAILY (IN THE MORNING)
     Route: 048
     Dates: start: 20170705, end: 20180822
  46. BUPROPION HCL ER [Concomitant]
     Active Substance: BUPROPION HYDROCHLORIDE
     Dosage: 1 DF, DAILY IN THE MORNING
     Dates: start: 20170627, end: 20170705
  47. TRINTELLIX [Concomitant]
     Active Substance: VORTIOXETINE HYDROBROMIDE
     Indication: DEPRESSION
     Dosage: 1 DF, DAILY
     Route: 048
     Dates: start: 20170316, end: 20170419
  48. TRINTELLIX [Concomitant]
     Active Substance: VORTIOXETINE HYDROBROMIDE
     Dosage: 1 DF, DAILY
     Route: 048
     Dates: start: 20170505, end: 20170526
  49. AZITHROMYCIN ANHYDROUS. [Concomitant]
     Active Substance: AZITHROMYCIN ANHYDROUS
     Dosage: 2 DAY 1 THEN 1 DAILY, 2-5 DAYS
     Route: 048
     Dates: start: 20120810, end: 20120815
  50. PREDNISONE. [Concomitant]
     Active Substance: PREDNISONE
     Dosage: 4X3D, 3X3D, 2X3D, 1X3D,
     Route: 048
     Dates: start: 20130829, end: 20131015
  51. PREDNISONE. [Concomitant]
     Active Substance: PREDNISONE
     Dosage: 3 DF, DAILY FOR 5 DAYS
     Route: 048
     Dates: start: 20160216, end: 20160221
  52. MACROBID [Concomitant]
     Active Substance: NITROFURANTOIN\NITROFURANTOIN MONOHYDRATE
     Indication: DYSURIA
     Dosage: 1 DF, 2X/DAY FOR 10 DAYS
     Route: 048
     Dates: start: 20130821, end: 20130831
  53. MACROBID [Concomitant]
     Active Substance: NITROFURANTOIN\NITROFURANTOIN MONOHYDRATE
     Indication: POLLAKIURIA
     Dosage: 1 DF, 2X/DAY FOR 10 DAYS
     Route: 048
     Dates: start: 20130829
  54. DIPROLENE [Concomitant]
     Active Substance: BETAMETHASONE DIPROPIONATE
     Dosage: UNK, 2X/DAY
     Dates: start: 20130829
  55. ZITHROMAX [Concomitant]
     Active Substance: AZITHROMYCIN DIHYDRATE
     Dosage: 2 ON DAY 1, 1 ON DAYS 2-5
     Route: 048
     Dates: start: 20170821, end: 20180111
  56. EFFEXOR XR [Suspect]
     Active Substance: VENLAFAXINE HYDROCHLORIDE
     Dosage: 75 MG, UNK
  57. TRIAMCINOLONE ACETONIDE. [Concomitant]
     Active Substance: TRIAMCINOLONE ACETONIDE
     Indication: DERMATITIS
     Dosage: 2X/DAY AS NEEDED
     Dates: start: 20160510
  58. TRIAMCINOLONE ACETONIDE. [Concomitant]
     Active Substance: TRIAMCINOLONE ACETONIDE
     Dosage: UNK
     Dates: start: 20170419
  59. VENLAFAXINE HCL [Concomitant]
     Active Substance: VENLAFAXINE HYDROCHLORIDE
     Dosage: UNK UNK, DAILY 1 PO X 2 WEEKS THEN 1 PO QOD ALTERNATING WITH 37.5 MG
     Route: 048
     Dates: start: 20180612, end: 20180822
  60. VITAMIN D [Concomitant]
     Active Substance: CHOLECALCIFEROL
     Dosage: 1 DF, WEEKLY FOR 12 WEEKS
     Route: 048
     Dates: start: 20170706, end: 20171004
  61. AZITHROMYCIN ANHYDROUS. [Concomitant]
     Active Substance: AZITHROMYCIN ANHYDROUS
     Dosage: 250 MG, UNK
     Dates: start: 20170419
  62. PREDNISONE. [Concomitant]
     Active Substance: PREDNISONE
     Indication: PHARYNGITIS
     Dosage: 4X3D, 3X3D, 2X3D, 1X3D
     Route: 048
     Dates: start: 20130827, end: 20131015
  63. DEPO-MEDROL [Concomitant]
     Active Substance: METHYLPREDNISOLONE ACETATE
     Dosage: UNK
     Dates: start: 20130827
  64. EFFEXOR XR [Suspect]
     Active Substance: VENLAFAXINE HYDROCHLORIDE
     Dosage: 150 MG, UNK
  65. EFFEXOR XR [Suspect]
     Active Substance: VENLAFAXINE HYDROCHLORIDE
     Dosage: 1 DF, 1X/DAY (AS DIRECTED)
     Route: 048
     Dates: start: 20170316, end: 20180406
  66. TRIAMCINOLONE ACETONIDE. [Concomitant]
     Active Substance: TRIAMCINOLONE ACETONIDE
     Dosage: UNK, AS NEEDED (TWICE A DAY)
     Dates: start: 20180607
  67. VENLAFAXINE HCL [Concomitant]
     Active Substance: VENLAFAXINE HYDROCHLORIDE
     Dosage: 1 DF, DAILY
     Route: 048
     Dates: start: 20170706, end: 20180612
  68. PREDNISONE. [Concomitant]
     Active Substance: PREDNISONE
     Dosage: 5X2D, 4X2D, 3X2D, 2X2D, 1X2D
     Route: 048
     Dates: start: 20180607, end: 20180617
  69. DEXILANT [Concomitant]
     Active Substance: DEXLANSOPRAZOLE
     Indication: ABDOMINAL PAIN UPPER
     Dosage: 1 DF, DAILY
     Route: 048
     Dates: start: 20140301, end: 20140311
  70. MACROBID [Concomitant]
     Active Substance: NITROFURANTOIN\NITROFURANTOIN MONOHYDRATE
     Dosage: 2X/DAY FOR 7 DAYS
     Route: 048
     Dates: start: 20140204, end: 20140211
  71. DOXYCYCLINE HYCLATE. [Concomitant]
     Active Substance: DOXYCYCLINE HYCLATE
     Dosage: 100 MG, 2X/DAY (7 DAYS)
     Route: 048
     Dates: start: 20180607
  72. PAXIL [Concomitant]
     Active Substance: PAROXETINE HYDROCHLORIDE
     Dosage: 1/2 TABLET (EVERYDAY)
     Route: 048
     Dates: start: 20181023

REACTIONS (7)
  - Suicidal ideation [Recovered/Resolved]
  - Gambling disorder [Recovered/Resolved]
  - Loss of consciousness [Unknown]
  - Withdrawal syndrome [Unknown]
  - Alcohol abuse [Recovering/Resolving]
  - Self esteem decreased [Unknown]
  - Weight increased [Unknown]

NARRATIVE: CASE EVENT DATE: 20150610
